FAERS Safety Report 9436678 (Version 1)
Quarter: 2013Q3

REPORT INFORMATION
  Report Type: Spontaneous
  Country: DE (occurrence: DE)
  Receive Date: 20130802
  Receipt Date: 20130802
  Transmission Date: 20140515
  Serious: Yes (Hospitalization)
  Sender: FDA-Public Use
  Company Number: DE-AMGEN-DEUSP2013034286

PATIENT
  Sex: Female

DRUGS (15)
  1. MIMPARA [Suspect]
     Indication: HYPERPARATHYROIDISM PRIMARY
     Dosage: 30 MG IN THE MORNING, 30 MG IN THE EVENING
     Route: 065
  2. NOVAMIN                            /00013301/ [Concomitant]
  3. AGGRENOX [Concomitant]
  4. CIPRALEX                           /01588501/ [Concomitant]
  5. XIPAMID [Concomitant]
  6. OMEP                               /00661201/ [Concomitant]
  7. SIMVASTATIN [Concomitant]
  8. VIGANTOLETTEN [Concomitant]
     Dosage: 1000 UNK, UNK
  9. MIRTAZAPIN [Concomitant]
  10. TRAMADOL [Concomitant]
  11. MOVICOL                            /01625101/ [Concomitant]
  12. INSUMAN RAPID [Concomitant]
  13. LANTUS [Concomitant]
  14. BELOC ZOK [Concomitant]
  15. HEPARIN [Concomitant]

REACTIONS (1)
  - Blood calcium increased [Recovered/Resolved]
